FAERS Safety Report 6279582-3 (Version None)
Quarter: 2009Q3

REPORT INFORMATION
  Report Type: 
  Country: None (occurrence: None)
  Receive Date: 20090723
  Receipt Date: 20090716
  Transmission Date: 20100115
  Serious: Yes (Hospitalization)
  Sender: FDA-Public Use
  Company Number: A0797341A

PATIENT
  Age: 22 Year
  Sex: Female

DRUGS (6)
  1. LAMICTAL [Suspect]
     Dosage: 500MG PER DAY
     Route: 048
  2. PROZAC [Concomitant]
  3. SEROQUEL [Concomitant]
  4. XANAX [Concomitant]
  5. ATIVAN [Concomitant]
  6. YASMIN [Concomitant]

REACTIONS (3)
  - AMNESIA [None]
  - CONVULSION [None]
  - TREMOR [None]
